FAERS Safety Report 6109404-2 (Version None)
Quarter: 2009Q1

REPORT INFORMATION
  Report Type: 
  Country: None (occurrence: None)
  Receive Date: 20090310
  Receipt Date: 20090306
  Transmission Date: 20090719
  Serious: Yes (Other)
  Sender: FDA-Public Use
  Company Number: B0555685A

PATIENT
  Age: 15 Year
  Sex: Female

DRUGS (5)
  1. RELENZA [Suspect]
     Indication: INFLUENZA
     Dosage: 15MG PER DAY
     Route: 055
     Dates: start: 20090119, end: 20090119
  2. CHINESE MEDICINE [Concomitant]
     Indication: INFLUENZA
     Dosage: 5G PER DAY
     Route: 048
     Dates: start: 20090119
  3. BROCIN CODEINE [Concomitant]
     Indication: COUGH
     Dosage: 4.5ML PER DAY
     Route: 048
     Dates: start: 20090121
  4. CHERRY BARK [Concomitant]
  5. MUCODYNE [Concomitant]
     Indication: COUGH
     Route: 048
     Dates: start: 20090121

REACTIONS (5)
  - ABNORMAL BEHAVIOUR [None]
  - ACCIDENTAL OVERDOSE [None]
  - COUGH [None]
  - FEELING ABNORMAL [None]
  - INCORRECT DOSE ADMINISTERED [None]
